FAERS Safety Report 8553555 (Version 3)
Quarter: 2014Q3

REPORT INFORMATION
  Report Type: Spontaneous
  Country: CI (occurrence: CI)
  Receive Date: 20120509
  Receipt Date: 20140729
  Transmission Date: 20150326
  Serious: Yes (Hospitalization, Other)
  Sender: FDA-Public Use
  Company Number: CI-RANBAXY-2012RR-55992

PATIENT
  Age: 80 Year
  Sex: Male

DRUGS (2)
  1. DILTIAZEM [Suspect]
     Active Substance: DILTIAZEM
     Indication: HYPERTENSION
     Dosage: 300 MG, DAILY
     Route: 065
  2. SIMVASTATIN. [Suspect]
     Active Substance: SIMVASTATIN
     Indication: HYPERCHOLESTEROLAEMIA
     Dosage: 20 MG, DAILY
     Route: 065

REACTIONS (1)
  - Chylothorax [Recovered/Resolved]

NARRATIVE: CASE EVENT DATE: 201001
